FAERS Safety Report 4953189-X (Version None)
Quarter: 2006Q1

REPORT INFORMATION
  Report Type: 
  Country: None (occurrence: None)
  Receive Date: 20060324
  Receipt Date: 20060214
  Transmission Date: 20060701
  Serious: Yes (Hospitalization)
  Sender: FDA-Public Use
  Company Number: US-MERCK-0602USA04423

PATIENT
  Age: 69 Year
  Sex: Male
  Weight: 71 kg

DRUGS (12)
  1. VIOXX [Suspect]
     Indication: BACK PAIN
     Route: 048
     Dates: start: 20010918, end: 20040930
  2. VIOXX [Suspect]
     Indication: ARTHRITIS
     Route: 048
     Dates: start: 20010918, end: 20040930
  3. COMBIVENT [Concomitant]
     Route: 065
     Dates: start: 20010101
  4. ISONIAZID [Concomitant]
     Indication: TUBERCULOSIS
     Route: 065
     Dates: start: 20010101
  5. PYRIDOXINE [Concomitant]
     Indication: TUBERCULOSIS
     Route: 065
     Dates: start: 20010101
  6. RIFAMPIN [Concomitant]
     Indication: TUBERCULOSIS
     Route: 065
     Dates: start: 20010101
  7. VIAGRA [Concomitant]
     Route: 065
     Dates: start: 20020101
  8. GENTAMICIN [Concomitant]
     Route: 065
  9. VITAMINS (UNSPECIFIED) [Concomitant]
     Route: 065
  10. ASPIRIN [Concomitant]
     Route: 065
  11. VITAMIN E [Concomitant]
     Route: 065
  12. CALCIUM (UNSPECIFIED) [Concomitant]
     Route: 065

REACTIONS (8)
  - ADVERSE EVENT [None]
  - AORTIC VALVE SCLEROSIS [None]
  - ATRIAL HYPERTROPHY [None]
  - BRADYCARDIA [None]
  - CEREBROVASCULAR ACCIDENT [None]
  - MITRAL VALVE INCOMPETENCE [None]
  - TUBERCULOSIS [None]
  - VENTRICULAR HYPERTROPHY [None]
